FAERS Safety Report 6071723-6 (Version None)
Quarter: 2009Q1

REPORT INFORMATION
  Report Type: 
  Country: None (occurrence: None)
  Receive Date: 20090209
  Receipt Date: 20090209
  Transmission Date: 20090719
  Serious: Yes (Death)
  Sender: FDA-Public Use
  Company Number: None

PATIENT
  Sex: Male
  Weight: 112.0385 kg

DRUGS (22)
  1. BYSTOLIC [Suspect]
     Indication: HYPERTENSION
     Dosage: 10 MG DAILY PO
     Route: 048
     Dates: start: 20081203, end: 20090122
  2. CLONIDINE HCL [Concomitant]
  3. LOPID [Concomitant]
  4. LISINOPRIL [Concomitant]
  5. GLUCOPHAGE [Concomitant]
  6. DILTIAZEM [Concomitant]
  7. K-DUR [Concomitant]
  8. NAPROSYN [Concomitant]
  9. HYDROCHLOROTHIAZIDE [Concomitant]
  10. VITAMIN B-12 [Concomitant]
  11. ASPIRIN [Concomitant]
  12. STOOL SOFTNER [Concomitant]
  13. LOVAZA [Concomitant]
  14. FIBER THERAPY [Concomitant]
  15. CALCIUM [Concomitant]
  16. VIT E [Concomitant]
  17. VIT C [Concomitant]
  18. BETA CAROTINE [Concomitant]
  19. AVODART-FINASTERIDE [Concomitant]
  20. NASONEX [Concomitant]
  21. ASTELIN [Concomitant]
  22. ATENOLOL [Concomitant]

REACTIONS (2)
  - BLOOD PRESSURE SYSTOLIC INCREASED [None]
  - EPISTAXIS [None]
